FAERS Safety Report 4746504-3 (Version None)
Quarter: 2005Q3

REPORT INFORMATION
  Report Type: 
  Country: None (occurrence: None)
  Receive Date: 20050815
  Receipt Date: 20050728
  Transmission Date: 20060218
  Serious: Yes (Death)
  Sender: FDA-Public Use
  Company Number: WAES 0507USA03936

PATIENT
  Age: 46 Year
  Sex: Female

DRUGS (4)
  1. CANCIDAS [Suspect]
     Indication: ASPERGILLOSIS
     Dosage: 50 MG/DAILY, IV
     Route: 042
     Dates: start: 20050722, end: 20050725
  2. (THERAPY UNSPECIFIED) [Concomitant]
  3. CYCLOSPORINE [Concomitant]
  4. MEROPENEM [Concomitant]

REACTIONS (13)
  - CEREBRAL ASPERGILLOSIS [None]
  - CONFUSIONAL STATE [None]
  - DEPRESSED LEVEL OF CONSCIOUSNESS [None]
  - ENCEPHALITIS [None]
  - ENCEPHALITIS VIRAL [None]
  - ENDOCARDITIS [None]
  - ENTEROCOCCAL INFECTION [None]
  - HEMIPARESIS [None]
  - LUNG INFILTRATION [None]
  - MULTI-ORGAN FAILURE [None]
  - SEPTIC EMBOLUS [None]
  - SEPTIC SHOCK [None]
  - TOXOPLASMOSIS [None]
